FAERS Safety Report 8400226-6 (Version None)
Quarter: 2012Q2

REPORT INFORMATION
  Report Type: 
  Country: None (occurrence: None)
  Receive Date: 20120531
  Receipt Date: 20120522
  Transmission Date: 20120825
  Serious: Yes (Hospitalization)
  Sender: FDA-Public Use
  Company Number: ES-ABBOTT-12P-144-0937714-00

PATIENT
  Sex: Male

DRUGS (1)
  1. HUMIRA [Suspect]
     Indication: PSORIASIS
     Route: 058
     Dates: start: 20101124

REACTIONS (5)
  - CHEST PAIN [None]
  - VERTIGO [None]
  - MITRAL VALVE INCOMPETENCE [None]
  - HEADACHE [None]
  - ANXIETY DISORDER [None]
